FAERS Safety Report 10581227 (Version 2)
Quarter: 2014Q4

REPORT INFORMATION
  Report Type: Spontaneous
  Country: US (occurrence: None)
  Receive Date: 20141110
  Receipt Date: 20141121
  Transmission Date: 20150529
  Serious: Yes (Other)
  Sender: FDA-Public Use
  Company Number: FK201404872

PATIENT
  Age: 74 Year
  Sex: Male
  Weight: 102 kg

DRUGS (14)
  1. K-DUR(POTASSIUM CHLORIDE) [Concomitant]
  2. GINGKO BILOBA [Concomitant]
  3. MULTIPLE VITAMIN(VIGRAN) [Concomitant]
  4. ASPIRIN(ACETYLSALICYLIC ACID) [Concomitant]
     Active Substance: ASPIRIN
  5. ZYRTEC(CETIRIZINE HYDROCHLORIDE) [Concomitant]
  6. CALCIUM VITAMIN D (CALCIUM D/01483701/) [Concomitant]
  7. DIOVAN HCT (CO-DIOVAN) [Concomitant]
  8. METOPROLOL(METOPROLOL) [Concomitant]
  9. SYNTHROID(LEVOTHYROXINE SODIUM) [Concomitant]
  10. NORVASC(AMLODIPINE BESILATE) [Concomitant]
  11. LOPID(GEMFIBROZIL) [Concomitant]
  12. CYANOCOBALAMIN INJECTION, USP (CYANOCOBALAMIN) (CYANOCOBALAMIN) [Suspect]
     Active Substance: CYANOCOBALAMIN
     Indication: PERNICIOUS ANAEMIA
     Route: 030
  13. SPIRONOLACTONE. [Concomitant]
     Active Substance: SPIRONOLACTONE
  14. CHONDROITIN SULFATE (BOVINE)\GLUCOSAMINE SULFATE [Concomitant]
     Active Substance: CHONDROITIN SULFATE (BOVINE)\GLUCOSAMINE SULFATE

REACTIONS (4)
  - Injection site swelling [None]
  - Injection site nodule [None]
  - Drug interaction [None]
  - Injection site bruising [None]

NARRATIVE: CASE EVENT DATE: 201410
